FAERS Safety Report 20971401 (Version 5)
Quarter: 2024Q3

REPORT INFORMATION
  Report Type: Spontaneous
  Country: US (occurrence: US)
  Receive Date: 20220616
  Receipt Date: 20240801
  Transmission Date: 20241016
  Serious: No
  Sender: SANOFI AVENTIS
  Company Number: US-SA-SAC20220609001512

PATIENT
  Age: 34 Year
  Sex: Female

DRUGS (1)
  1. DUPIXENT [Suspect]
     Active Substance: DUPILUMAB
     Indication: Dermatitis atopic
     Dosage: 300 MG, QOW
     Route: 058
     Dates: start: 20200901

REACTIONS (8)
  - Discomfort [Unknown]
  - Sleep disorder [Not Recovered/Not Resolved]
  - Oropharyngeal pain [Unknown]
  - Dermatitis atopic [Not Recovered/Not Resolved]
  - Rash [Unknown]
  - Pain [Not Recovered/Not Resolved]
  - Oral herpes [Unknown]
  - Impaired quality of life [Unknown]
